FAERS Safety Report 18198083 (Version 1)
Quarter: 2020Q3

REPORT INFORMATION
  Report Type: Spontaneous
  Country: US (occurrence: US)
  Receive Date: 20200825
  Receipt Date: 20200825
  Transmission Date: 20201103
  Serious: Yes (Death)
  Sender: FDA-Public Use
  Company Number: None

PATIENT
  Age: 85 Year
  Sex: Female
  Weight: 81.64 kg

DRUGS (2)
  1. REMDESIVIR. [Suspect]
     Active Substance: REMDESIVIR
     Indication: COVID-19
     Route: 042
     Dates: start: 20200722, end: 20200726
  2. CONVELESENT PLASMA [Concomitant]
     Dates: start: 20200723, end: 20200723

REACTIONS (23)
  - Aspiration [None]
  - Hypercoagulation [None]
  - Epistaxis [None]
  - Renal impairment [None]
  - Cytokine storm [None]
  - Aspartate aminotransferase increased [None]
  - Hyperkalaemia [None]
  - Catheter site discharge [None]
  - Hypoxia [None]
  - Gallbladder disorder [None]
  - Oliguria [None]
  - Renal tubular necrosis [None]
  - Swallow study abnormal [None]
  - Alanine aminotransferase increased [None]
  - International normalised ratio increased [None]
  - Hepatic function abnormal [None]
  - Gallbladder enlargement [None]
  - Acidosis [None]
  - Cardioactive drug level increased [None]
  - Atrial fibrillation [None]
  - Haemorrhage [None]
  - Hypernatraemia [None]
  - Cardiac arrest [None]

NARRATIVE: CASE EVENT DATE: 20200730
